FAERS Safety Report 25837887 (Version 1)
Quarter: 2025Q3

REPORT INFORMATION
  Report Type: Spontaneous
  Country: AU (occurrence: AU)
  Receive Date: 20250923
  Receipt Date: 20250923
  Transmission Date: 20251021
  Serious: Yes (Death, Hospitalization, Other)
  Sender: SANDOZ
  Company Number: AU-002147023-NVSC2023AU093721

PATIENT
  Age: 2 Month
  Sex: Male

DRUGS (7)
  1. DEXAMETHASONE [Suspect]
     Active Substance: DEXAMETHASONE
     Indication: Haemophagocytic lymphohistiocytosis
     Route: 065
  2. ETOPOSIDE [Suspect]
     Active Substance: ETOPOSIDE
     Indication: Haemophagocytic lymphohistiocytosis
     Route: 065
  3. AMIKACIN [Concomitant]
     Active Substance: AMIKACIN
     Indication: Escherichia infection
     Route: 065
  4. GANCICLOVIR [Concomitant]
     Active Substance: GANCICLOVIR
     Indication: Cytomegalovirus infection
     Route: 065
  5. MEROPENEM [Concomitant]
     Active Substance: MEROPENEM
     Indication: Escherichia infection
     Route: 065
  6. SEBELIPASE ALFA [Concomitant]
     Active Substance: SEBELIPASE ALFA
     Indication: Enzyme abnormality
     Dosage: 5 MG/KG, QW, THREE WEEKS
     Route: 042
  7. Vivonex T.E.N. [Concomitant]
     Indication: Medical diet
     Route: 065

REACTIONS (12)
  - Neonatal gastrointestinal haemorrhage [Fatal]
  - Portal hypertension [Fatal]
  - Viraemia [Fatal]
  - Hepatic function abnormal [Fatal]
  - Bacteraemia [Fatal]
  - Ascites [Fatal]
  - Condition aggravated [Fatal]
  - Upper gastrointestinal haemorrhage [Unknown]
  - Acute respiratory failure [Unknown]
  - Condition aggravated [Unknown]
  - Off label use [Unknown]
  - Product use issue [Unknown]
